FAERS Safety Report 7075095-X (Version None)
Quarter: 2010Q4

REPORT INFORMATION
  Report Type: 
  Country: None (occurrence: None)
  Receive Date: 20101029
  Receipt Date: 20100309
  Transmission Date: 20110411
  Serious: No
  Sender: FDA-Public Use
  Company Number: US-WYE-H14062210

PATIENT

DRUGS (1)
  1. ALAVERT D-12 [Suspect]
     Indication: HYPERSENSITIVITY
     Dosage: UNKNOWN
     Route: 065

REACTIONS (1)
  - DRUG INEFFECTIVE [None]
